FAERS Safety Report 19969763 (Version 1)
Quarter: 2021Q4

REPORT INFORMATION
  Report Type: Other
  Country: TR (occurrence: TR)
  Receive Date: 20211019
  Receipt Date: 20211019
  Transmission Date: 20220303
  Serious: Yes (Hospitalization)
  Sender: FDA-Public Use
  Company Number: TR-ROCHE-2935199

PATIENT
  Age: 75 Year
  Sex: Female
  Weight: 55 kg

DRUGS (3)
  1. PIRFENIDONE [Suspect]
     Active Substance: PIRFENIDONE
     Indication: Idiopathic pulmonary fibrosis
     Route: 065
  2. METHYLPREDNISOLONE [Suspect]
     Active Substance: METHYLPREDNISOLONE
     Indication: Idiopathic pulmonary fibrosis
     Route: 065
     Dates: start: 20210917, end: 20210922
  3. ATROVENT [Suspect]
     Active Substance: IPRATROPIUM BROMIDE
     Indication: Idiopathic pulmonary fibrosis
     Dosage: 250MCG/2 ML
     Route: 065
     Dates: start: 20210917, end: 20210922

REACTIONS (1)
  - Idiopathic pulmonary fibrosis [Recovered/Resolved]

NARRATIVE: CASE EVENT DATE: 20210917
